FAERS Safety Report 10220556 (Version 1)
Quarter: 2014Q2

REPORT INFORMATION
  Report Type: Spontaneous
  Country: GB (occurrence: None)
  Receive Date: 20140604
  Receipt Date: 20140604
  Transmission Date: 20141212
  Serious: Yes (Hospitalization)
  Sender: FDA-Public Use
  Company Number: FK201402088

PATIENT
  Age: 60 Year
  Sex: Female
  Weight: 55.4 kg

DRUGS (6)
  1. CISPLATIN (MANUFACTURER UNKNOWN) (CISPLATIN) (CISPLATIN) [Suspect]
     Indication: LUNG ADENOCARCINOMA
     Dosage: NOT OTHERWISE SPECIFIED
     Route: 042
     Dates: start: 20131203, end: 20131203
  2. ALIMTA [Suspect]
     Indication: LUNG ADENOCARCINOMA
     Dosage: NOT OTHERWISE SPECIFIED
     Route: 042
     Dates: start: 20131203, end: 20131203
  3. APREPITANT (APREPITANT) [Concomitant]
  4. CYCLIZINE (CYCLIZINE) [Concomitant]
  5. FOLINIC ACID (FOLINIC ACID) [Concomitant]
  6. ONDANSETRON (ONDANSETRON) [Concomitant]

REACTIONS (7)
  - Capillary leak syndrome [None]
  - Peripheral swelling [None]
  - Swelling face [None]
  - Rash generalised [None]
  - Vomiting [None]
  - Rash [None]
  - Nausea [None]
